FAERS Safety Report 20135284 (Version 2)
Quarter: 2022Q1

REPORT INFORMATION
  Report Type: Report from Study
  Country: JP (occurrence: JP)
  Receive Date: 20211201
  Receipt Date: 20220202
  Transmission Date: 20220424
  Serious: Yes (Other)
  Sender: FDA-Public Use
  Company Number: JP-UCBJ-CD202102807UCBPHAPROD

PATIENT
  Age: 74 Year
  Sex: Female
  Weight: 41 kg

DRUGS (10)
  1. LACOSAMIDE [Suspect]
     Active Substance: LACOSAMIDE
     Indication: Partial seizures with secondary generalisation
     Dosage: 50 MILLIGRAM, 2X/DAY (BID)
     Route: 048
     Dates: start: 20201116, end: 202011
  2. LACOSAMIDE [Suspect]
     Active Substance: LACOSAMIDE
     Dosage: 100 MILLIGRAM, 2X/DAY (BID)
     Route: 048
     Dates: start: 20201123
  3. LEVETIRACETAM [Concomitant]
     Active Substance: LEVETIRACETAM
     Indication: Partial seizures with secondary generalisation
     Dosage: 1000 MG DAILY
     Route: 041
     Dates: start: 20201112, end: 20201116
  4. LEVETIRACETAM [Concomitant]
     Active Substance: LEVETIRACETAM
     Dosage: 2000 MG DAILY
     Route: 041
     Dates: start: 20201117, end: 20201123
  5. FOSPHENYTOIN SODIUM [Concomitant]
     Active Substance: FOSPHENYTOIN SODIUM
     Indication: Partial seizures with secondary generalisation
     Dosage: 900 MG DAILY
     Route: 042
     Dates: start: 20201116, end: 20201116
  6. FOSPHENYTOIN SODIUM [Concomitant]
     Active Substance: FOSPHENYTOIN SODIUM
     Dosage: 300 MG DAILY
     Route: 042
     Dates: start: 20201117, end: 20201125
  7. FYCOMPA [Concomitant]
     Active Substance: PERAMPANEL
     Indication: Partial seizures with secondary generalisation
     Dosage: 2 MG DAILY
     Route: 048
     Dates: start: 20201118, end: 20201124
  8. FYCOMPA [Concomitant]
     Active Substance: PERAMPANEL
     Dosage: 4 MG DAILY
     Route: 048
     Dates: start: 20201125
  9. LEVETIRACETAM [Concomitant]
     Active Substance: LEVETIRACETAM
     Indication: Partial seizures with secondary generalisation
     Dosage: 2000 MILLIGRAM DAILY
     Route: 048
     Dates: start: 20201124
  10. AMPICILLIN SODIUM\SULBACTAM SODIUM [Concomitant]
     Active Substance: AMPICILLIN SODIUM\SULBACTAM SODIUM
     Indication: Product used for unknown indication
     Route: 042
     Dates: start: 20201113, end: 20201125

REACTIONS (2)
  - Syncope [Recovered/Resolved]
  - Anaemia [Unknown]

NARRATIVE: CASE EVENT DATE: 20201207
